FAERS Safety Report 15786379 (Version 6)
Quarter: 2019Q3

REPORT INFORMATION
  Report Type: Spontaneous
  Country: US (occurrence: US)
  Receive Date: 20190103
  Receipt Date: 20190701
  Transmission Date: 20191004
  Serious: Yes (Hospitalization, Other)
  Sender: FDA-Public Use
  Company Number: US-ACHAOGEN INC-US-ACHN-18-00023

PATIENT
  Age: 74 Year
  Sex: Male
  Weight: 102.6 kg

DRUGS (5)
  1. ZEMDRI [Suspect]
     Active Substance: PLAZOMICIN
     Indication: PYELONEPHRITIS ACUTE
  2. INVANZ [Concomitant]
     Active Substance: ERTAPENEM SODIUM
     Indication: PYELONEPHRITIS
  3. ZEMDRI [Suspect]
     Active Substance: PLAZOMICIN
     Indication: URINARY TRACT INFECTION
     Dosage: 15 MG/KG
     Route: 042
     Dates: start: 20181121, end: 20181123
  4. CITROPIN [Concomitant]
     Indication: URINARY TRACT INFECTION
  5. MEROPENEM. [Concomitant]
     Active Substance: MEROPENEM
     Indication: URINARY TRACT INFECTION

REACTIONS (4)
  - Confusional state [Recovered/Resolved]
  - Diarrhoea [Recovered/Resolved]
  - Drug level increased [Unknown]
  - Dehydration [Recovered/Resolved]

NARRATIVE: CASE EVENT DATE: 20181124
